FAERS Safety Report 9089661 (Version 1)
Quarter: 2013Q1

REPORT INFORMATION
  Report Type: Report from Study
  Country: US (occurrence: US)
  Receive Date: 20130131
  Receipt Date: 20130131
  Transmission Date: 20140127
  Serious: Yes (Other)
  Sender: FDA-Public Use
  Company Number: US-ABBOTT-12P-163-1015110-00

PATIENT
  Age: 75 None
  Sex: Female
  Weight: 53.12 kg

DRUGS (2)
  1. HUMIRA [Suspect]
     Indication: RHEUMATOID ARTHRITIS
     Dates: start: 2002, end: 201207
  2. HUMIRA [Suspect]
     Dates: start: 20120930

REACTIONS (5)
  - Atrial fibrillation [Recovering/Resolving]
  - Heart rate increased [Recovering/Resolving]
  - Bacterial infection [Recovered/Resolved]
  - Vomiting [Recovered/Resolved]
  - Diarrhoea [Recovered/Resolved]
